FAERS Safety Report 4608432-3 (Version None)
Quarter: 2005Q1

REPORT INFORMATION
  Report Type: 
  Country: None (occurrence: None)
  Receive Date: 20050311
  Receipt Date: 20050311
  Transmission Date: 20050727
  Serious: Yes (Hospitalization)
  Sender: FDA-Public Use
  Company Number: None

PATIENT
  Age: 32 Year
  Sex: Female

DRUGS (2)
  1. METRONIDAZOLE [Suspect]
     Indication: PROPHYLAXIS
     Dosage: INTRAVENOUS
     Route: 042
     Dates: start: 20050117, end: 20050118
  2. TEQUIN [Suspect]
     Indication: PROPHYLAXIS
     Dosage: IV
     Route: 042
     Dates: start: 20050117, end: 20050118

REACTIONS (3)
  - DYSPNOEA [None]
  - PNEUMONIA [None]
  - RASH PAPULAR [None]
